FAERS Safety Report 8235716-2 (Version None)
Quarter: 2012Q1

REPORT INFORMATION
  Report Type: 
  Country: None (occurrence: None)
  Receive Date: 20120326
  Receipt Date: 20120321
  Transmission Date: 20120608
  Serious: Yes (Other)
  Sender: FDA-Public Use
  Company Number: PHEH2012US006388

PATIENT
  Sex: Male

DRUGS (1)
  1. EXELON [Suspect]
     Dosage: 9.5 MG/24 HOURS
     Route: 062
     Dates: start: 20111017

REACTIONS (4)
  - SINUS CONGESTION [None]
  - DYSPNOEA [None]
  - BLOOD PRESSURE INCREASED [None]
  - FLUSHING [None]
